FAERS Safety Report 8565315-4 (Version None)
Quarter: 2012Q3

REPORT INFORMATION
  Report Type: 
  Country: None (occurrence: None)
  Receive Date: 20120803
  Receipt Date: 20120719
  Transmission Date: 20120928
  Serious: Yes (Hospitalization)
  Sender: FDA-Public Use
  Company Number: FR-ROCHE-1095461

PATIENT
  Age: 74 Year
  Sex: Male

DRUGS (5)
  1. CELL CEPT [Suspect]
     Indication: RENAL TRANSPLANT
     Route: 048
     Dates: start: 20101218
  2. CYCLOSPORINE [Suspect]
     Indication: RENAL TRANSPLANT
     Route: 048
     Dates: start: 20101220
  3. SIMULECT [Concomitant]
     Route: 042
     Dates: start: 20101218, end: 20101218
  4. CYCLOSPORINE [Suspect]
     Dosage: 176MG IN MORNING 150MG IN EVENING
     Dates: start: 20110105
  5. CYCLOSPORINE [Suspect]
     Dosage: 613 UG/L

REACTIONS (3)
  - BLOOD CREATININE INCREASED [None]
  - METABOLIC ACIDOSIS [None]
  - COMPLICATIONS OF TRANSPLANTED KIDNEY [None]
